FAERS Safety Report 10380742 (Version 1)
Quarter: 2014Q3

REPORT INFORMATION
  Report Type: Spontaneous
  Country: US (occurrence: None)
  Receive Date: 20140812
  Receipt Date: 20140812
  Transmission Date: 20150326
  Serious: Yes (Death, Hospitalization)
  Sender: FDA-Public Use
  Company Number: None

PATIENT
  Age: 61 Year
  Sex: Female

DRUGS (5)
  1. ESOMEPRAZOLE [Concomitant]
     Active Substance: ESOMEPRAZOLE
  2. HYDROCHLOROTHIAZIDE. [Concomitant]
     Active Substance: HYDROCHLOROTHIAZIDE
  3. PREDNISONE. [Concomitant]
     Active Substance: PREDNISONE
  4. CLINDAMYCIN [Suspect]
     Active Substance: CLINDAMYCIN\CLINDAMYCIN PHOSPHATE
     Indication: BACTERIAL INFECTION
     Dates: start: 20100625, end: 20130330
  5. AMLODIPINE-OLMESATAN [Concomitant]

REACTIONS (14)
  - Oedema [None]
  - General physical health deterioration [None]
  - Hepatic fibrosis [None]
  - Ascites [None]
  - Syncope [None]
  - Myalgia [None]
  - Renal disorder [None]
  - Drug-induced liver injury [None]
  - Confusional state [None]
  - Portal fibrosis [None]
  - Condition aggravated [None]
  - Chronic hepatitis [None]
  - Peritonitis bacterial [None]
  - Coagulopathy [None]

NARRATIVE: CASE EVENT DATE: 20130424
